FAERS Safety Report 7544014-1 (Version None)
Quarter: 2011Q2

REPORT INFORMATION
  Report Type: 
  Country: None (occurrence: None)
  Receive Date: 20110613
  Receipt Date: 20040915
  Transmission Date: 20111010
  Serious: Yes (Hospitalization, Other)
  Sender: FDA-Public Use
  Company Number: PHHO2004JP13050

PATIENT
  Sex: Female
  Weight: 59 kg

DRUGS (6)
  1. LASIX [Concomitant]
     Indication: HYPERTENSION
  2. METHYCOBAL [Concomitant]
     Indication: NEUROPATHY PERIPHERAL
  3. TICLOPIDINE HCL [Concomitant]
     Indication: CEREBROVASCULAR DISORDER
  4. ADALAT [Concomitant]
     Indication: HYPERTENSION
  5. DIOVAN [Suspect]
     Indication: HYPERTENSION
     Dosage: 80 MG, QD
     Route: 048
     Dates: start: 20030530
  6. GLYBURIDE [Concomitant]
     Indication: DIABETES MELLITUS

REACTIONS (3)
  - NASOPHARYNGITIS [None]
  - CARDIAC FAILURE [None]
  - PNEUMONIA [None]
